FAERS Safety Report 10912148 (Version 1)
Quarter: 2015Q1

REPORT INFORMATION
  Report Type: Spontaneous
  Country: US (occurrence: None)
  Receive Date: 20150310
  Receipt Date: 20150310
  Transmission Date: 20150721
  Serious: No
  Sender: FDA-Public Use
  Company Number: None

PATIENT
  Age: 61 Year
  Sex: Male
  Weight: 71.67 kg

DRUGS (1)
  1. SILDENAFIL. [Suspect]
     Active Substance: SILDENAFIL
     Indication: ERECTILE DYSFUNCTION
     Dosage: 1-5 TABS, 1-4 HRS PRIOR TO SEXUAL ACTIVITY MAX OF STABS PER 24 HRS?
     Dates: start: 20140824, end: 20140906

REACTIONS (1)
  - Headache [None]

NARRATIVE: CASE EVENT DATE: 20140830
